FAERS Safety Report 25093505 (Version 2)
Quarter: 2025Q1

REPORT INFORMATION
  Report Type: Spontaneous
  Country: US (occurrence: US)
  Receive Date: 20250319
  Receipt Date: 20250326
  Transmission Date: 20250409
  Serious: Yes (Other)
  Sender: UCB
  Company Number: US-UCBSA-2025013580

PATIENT
  Age: 30 Year
  Sex: Female

DRUGS (3)
  1. BRIVIACT [Suspect]
     Active Substance: BRIVARACETAM
     Indication: Seizure
     Dosage: 200 MILLIGRAM, 2X/DAY (BID), 200MG IN THE MORNING AND 200MG IN THE EVENING.
  2. BRIVIACT [Suspect]
     Active Substance: BRIVARACETAM
     Dosage: 300 MILLIGRAM, DAILY (100 MG ONE TAB IN THE MORNING AND 100 MG TWO TABS IN THE EVENING)
  3. BRIVIACT [Suspect]
     Active Substance: BRIVARACETAM

REACTIONS (4)
  - Seizure [Unknown]
  - Tardive dyskinesia [Unknown]
  - Overdose [Unknown]
  - Product use issue [Unknown]

NARRATIVE: CASE EVENT DATE: 20250301
